FAERS Safety Report 5466730-8 (Version None)
Quarter: 2007Q3

REPORT INFORMATION
  Report Type: 
  Country: None (occurrence: None)
  Receive Date: 20070920
  Receipt Date: 20070911
  Transmission Date: 20080115
  Serious: Yes (Death)
  Sender: FDA-Public Use
  Company Number: 17416

PATIENT
  Age: 66 Year
  Sex: Female

DRUGS (16)
  1. CYTARABINE [Suspect]
     Indication: ACUTE MYELOID LEUKAEMIA
     Dosage: 200 MG IV
     Route: 042
     Dates: start: 20061027, end: 20061030
  2. CYTARABINE [Suspect]
     Indication: ACUTE MYELOID LEUKAEMIA
     Dosage: 200 MG IV
     Route: 042
     Dates: start: 20061109
  3. DECITABINE [Suspect]
     Indication: ACUTE MYELOID LEUKAEMIA
     Dosage: 36.8 MG/M2 QD IV
     Route: 042
     Dates: start: 20060926, end: 20060930
  4. ADRIAMYCIN PFS [Concomitant]
  5. FLUCONAZOLE [Concomitant]
  6. CEFAZEDONE [Concomitant]
  7. OMEPRAZOLE [Concomitant]
  8. PEFLOXACIN [Concomitant]
  9. KETOCONAZOLE [Concomitant]
  10. FLUCONAZOLE [Concomitant]
  11. METOCLOPRAMIDE [Concomitant]
  12. DEXAMETHASONE 0.5MG TAB [Concomitant]
  13. FUROSEMIDE [Concomitant]
  14. CEFEPIME [Concomitant]
  15. CEFTAZIDIME [Concomitant]
  16. NETILMICIN SULFATE [Concomitant]

REACTIONS (10)
  - ACUTE MYELOID LEUKAEMIA [None]
  - BRONCHOPNEUMONIA [None]
  - HAEMOGLOBIN DECREASED [None]
  - HEPATIC FAILURE [None]
  - LOSS OF CONSCIOUSNESS [None]
  - MALIGNANT NEOPLASM PROGRESSION [None]
  - PLATELET COUNT DECREASED [None]
  - PULMONARY OEDEMA [None]
  - RESPIRATORY FAILURE [None]
  - SHOCK [None]
